FAERS Safety Report 19306464 (Version 6)
Quarter: 2022Q1

REPORT INFORMATION
  Report Type: Spontaneous
  Country: JP (occurrence: None)
  Receive Date: 20210526
  Receipt Date: 20220224
  Transmission Date: 20220423
  Serious: Yes (Life-Threatening, Hospitalization)
  Sender: FDA-Public Use
  Company Number: 2021A452827

PATIENT
  Age: 25353 Day
  Sex: Male
  Weight: 60 kg

DRUGS (8)
  1. IMFINZI [Suspect]
     Active Substance: DURVALUMAB
     Indication: Small cell lung cancer
     Route: 041
     Dates: start: 20201201, end: 20210330
  2. IMFINZI [Suspect]
     Active Substance: DURVALUMAB
     Indication: Small cell lung cancer
     Dosage: EVERY FOUR WEEKS
     Route: 041
  3. CISPLATIN [Suspect]
     Active Substance: CISPLATIN
     Indication: Small cell lung cancer
     Route: 041
     Dates: start: 20201201, end: 20210302
  4. ETOPOSIDE [Suspect]
     Active Substance: ETOPOSIDE
     Indication: Small cell lung cancer
     Dosage: DOSE UNKNOWN, ON DAY 1, 2, AND 3 OF EACH CYCLE
     Route: 041
     Dates: start: 20201201, end: 20210304
  5. MAGNESIUM OXIDE [Concomitant]
     Active Substance: MAGNESIUM OXIDE
     Route: 048
  6. APREPITANT [Concomitant]
     Active Substance: APREPITANT
     Route: 048
     Dates: start: 20210105, end: 20210105
  7. APREPITANT [Concomitant]
     Active Substance: APREPITANT
     Dosage: AFTER BREAKFAST
     Route: 048
     Dates: start: 20210106, end: 20210107
  8. DECADRON [Concomitant]
     Active Substance: DEXAMETHASONE
     Route: 048
     Dates: start: 20210106, end: 20210108

REACTIONS (4)
  - Neutrophil count decreased [Recovered/Resolved]
  - Stomatitis [Unknown]
  - Abdominal pain upper [Unknown]
  - Liver disorder [Unknown]

NARRATIVE: CASE EVENT DATE: 20201213
